FAERS Safety Report 17209565 (Version 1)
Quarter: 2019Q4

REPORT INFORMATION
  Report Type: Spontaneous
  Country: KR (occurrence: KR)
  Receive Date: 20191227
  Receipt Date: 20191227
  Transmission Date: 20200122
  Serious: Yes (Hospitalization, Disabling, Other)
  Sender: FDA-Public Use
  Company Number: KR-ROCHE-2509919

PATIENT
  Age: 4 Decade
  Sex: Male

DRUGS (1)
  1. GANCICLOVIR. [Suspect]
     Active Substance: GANCICLOVIR
     Indication: CYTOMEGALOVIRUS CHORIORETINITIS
     Dosage: 2MG/0.04ML
     Route: 031

REACTIONS (6)
  - Retinopathy [Not Recovered/Not Resolved]
  - Intraocular pressure increased [Unknown]
  - Blindness [Not Recovered/Not Resolved]
  - Optic atrophy [Not Recovered/Not Resolved]
  - Accidental overdose [Unknown]
  - Product use issue [Unknown]
